FAERS Safety Report 4711899-3 (Version None)
Quarter: 2005Q3

REPORT INFORMATION
  Report Type: 
  Country: None (occurrence: None)
  Receive Date: 20050708
  Receipt Date: 20050426
  Transmission Date: 20060218
  Serious: Yes (Other)
  Sender: FDA-Public Use
  Company Number: US-2005-006421

PATIENT
  Age: 48 Year
  Sex: Female
  Weight: 77.1 kg

DRUGS (3)
  1. ULTRAVIST 300 [Suspect]
     Indication: COMPUTERISED TOMOGRAM THORAX
     Dosage: 150 ML, 1 DOSE, INTRAVENOUS
     Route: 042
     Dates: start: 20050426, end: 20050426
  2. SYNTHROID [Concomitant]
  3. CRESTOR [Concomitant]

REACTIONS (9)
  - ANXIETY [None]
  - BLOOD PRESSURE INCREASED [None]
  - COUGH [None]
  - DYSPNOEA [None]
  - OEDEMA PERIPHERAL [None]
  - SWELLING FACE [None]
  - SWOLLEN TONGUE [None]
  - URTICARIA [None]
  - WHEEZING [None]
